FAERS Safety Report 18534903 (Version 1)
Quarter: 2020Q4

REPORT INFORMATION
  Report Type: Spontaneous
  Country: FR (occurrence: FR)
  Receive Date: 20201123
  Receipt Date: 20201123
  Transmission Date: 20210114
  Serious: Yes (Other)
  Sender: FDA-Public Use
  Company Number: FR-SEPTODONT-202005915

PATIENT
  Age: 62 Year
  Sex: Male
  Weight: 54 kg

DRUGS (2)
  1. SEPTANEST [Suspect]
     Active Substance: ARTICAINE HYDROCHLORIDE\EPINEPHRINE BITARTRATE
     Indication: DENTAL LOCAL ANAESTHESIA
     Dosage: DENTAL NEEDLE 0.30X21 MM
     Route: 004
     Dates: start: 20200824
  2. SEPTANEST [Suspect]
     Active Substance: ARTICAINE HYDROCHLORIDE\EPINEPHRINE BITARTRATE
     Indication: DENTAL LOCAL ANAESTHESIA
     Dosage: DENTAL NEEDLE 0.30X21 MM
     Route: 004
     Dates: start: 20200828

REACTIONS (4)
  - Paralysis [Not Recovered/Not Resolved]
  - Limb discomfort [Not Recovered/Not Resolved]
  - Monoparesis [Not Recovered/Not Resolved]
  - Paralysis [Not Recovered/Not Resolved]

NARRATIVE: CASE EVENT DATE: 20200824
